FAERS Safety Report 7367371-8 (Version None)
Quarter: 2011Q1

REPORT INFORMATION
  Report Type: 
  Country: None (occurrence: None)
  Receive Date: 20110311
  Receipt Date: 20110303
  Transmission Date: 20110831
  Serious: Yes (Death, Life-Threatening, Hospitalization, Other)
  Sender: FDA-Public Use
  Company Number: 2011SP006840

PATIENT
  Age: 59 Year
  Sex: Male

DRUGS (6)
  1. ATENOLOL [Concomitant]
  2. AMITRIPTYLINE (AMITRIPTYLINE) [Suspect]
     Indication: PRODUCT USED FOR UNKNOWN INDICATION
     Dosage: 125 MG;QD
  3. ISOSORBIDE MONONITRATE [Concomitant]
  4. BENDROFLUMETHAZIDE [Concomitant]
  5. MIRTAZAPINE [Suspect]
     Indication: PRODUCT USED FOR UNKNOWN INDICATION
     Dosage: 60 MG;QD
  6. ALPRAZOLAM [Concomitant]

REACTIONS (7)
  - DRUG INTERACTION [None]
  - SEROTONIN SYNDROME [None]
  - METABOLIC ACIDOSIS [None]
  - CEREBELLAR ATROPHY [None]
  - DISSEMINATED INTRAVASCULAR COAGULATION [None]
  - MULTI-ORGAN FAILURE [None]
  - DEPRESSED LEVEL OF CONSCIOUSNESS [None]
